FAERS Safety Report 5577403-5 (Version None)
Quarter: 2007Q4

REPORT INFORMATION
  Report Type: 
  Country: None (occurrence: None)
  Receive Date: 20071228
  Receipt Date: 20071220
  Transmission Date: 20080405
  Serious: Yes (Other)
  Sender: FDA-Public Use
  Company Number: FR-PFIZER INC-2007107369

PATIENT
  Sex: Female

DRUGS (1)
  1. XANAX [Suspect]

REACTIONS (4)
  - DYSPNOEA [None]
  - INSOMNIA [None]
  - INTENTIONAL DRUG MISUSE [None]
  - MUSCULAR WEAKNESS [None]
